FAERS Safety Report 4392718-4 (Version None)
Quarter: 2004Q3

REPORT INFORMATION
  Report Type: 
  Country: None (occurrence: None)
  Receive Date: 20040702
  Receipt Date: 20040621
  Transmission Date: 20050211
  Serious: Yes (Hospitalization)
  Sender: FDA-Public Use
  Company Number: S04-FRA-02650-01

PATIENT
  Age: 67 Year
  Sex: Female

DRUGS (5)
  1. SEROPRAM (CITALOPRAM HYDROBROMIDE) [Suspect]
     Dosage: 1 UNK  PO
     Route: 048
     Dates: start: 19990115
  2. TRANXENE [Suspect]
     Dosage: 1 UN QD PO
     Route: 048
     Dates: start: 19990115
  3. INSULATARD NPH HUMAN [Concomitant]
     Dates: start: 20040503
  4. GLUCOPHAGE [Suspect]
     Dosage: 500 MG TID PO
     Route: 048
     Dates: start: 19990115
  5. AMAREL (GLIMEPIRIDE0 [Concomitant]

REACTIONS (2)
  - DIABETES MELLITUS INADEQUATE CONTROL [None]
  - LEUKOCYTOCLASTIC VASCULITIS [None]
